FAERS Safety Report 4337554-X (Version None)
Quarter: 2004Q2

REPORT INFORMATION
  Report Type: 
  Country: None (occurrence: None)
  Receive Date: 20040412
  Receipt Date: 20040412
  Transmission Date: 20050107
  Serious: Yes (Other)
  Sender: FDA-Public Use
  Company Number: None

PATIENT
  Age: 55 Year
  Sex: Male
  Weight: 131.5431 kg

DRUGS (1)
  1. PAROXETINE HCL [Suspect]
     Indication: ANXIETY
     Dosage: ONE PER DAY ORAL
     Route: 048
     Dates: start: 20040315, end: 20040409

REACTIONS (2)
  - DRUG WITHDRAWAL SYNDROME [None]
  - SLEEP DISORDER [None]
